FAERS Safety Report 5573865-8 (Version None)
Quarter: 2007Q4

REPORT INFORMATION
  Report Type: 
  Country: None (occurrence: None)
  Receive Date: 20071226
  Receipt Date: 20071213
  Transmission Date: 20080405
  Serious: Yes (Life-Threatening, Hospitalization, Other)
  Sender: FDA-Public Use
  Company Number: GB-RANBAXY-2007RR-12069

PATIENT

DRUGS (12)
  1. SIMVASTATIN 10MG TABLETS [Suspect]
     Dosage: 10 MG, QD
     Route: 048
     Dates: start: 20040416
  2. ADALAT [Suspect]
     Dosage: 60 MG, QD
     Route: 048
     Dates: start: 20020801
  3. SIROLIMUS [Suspect]
     Dosage: 2 MG, QD
     Route: 048
     Dates: start: 20030818
  4. AZITHROMYCIN [Concomitant]
     Dosage: 250 MG, QD
     Route: 048
     Dates: start: 20040416
  5. COTRIM [Concomitant]
     Dosage: 480 MG, QD
     Route: 048
     Dates: start: 20020801
  6. FERROUS GLUCONATE TABLETS BP 300MG [Concomitant]
     Dosage: 600 MG, BID
     Route: 048
     Dates: start: 20070723
  7. FUROSEMIDE TABLETS BP 40MG [Concomitant]
     Dosage: 40 MG, QD
     Route: 048
     Dates: start: 20050712
  8. LANTUS [Concomitant]
     Dosage: UNK
     Route: 058
     Dates: start: 20050913
  9. NOVORAPID [Concomitant]
     Dosage: UNK
     Route: 058
     Dates: start: 20050913
  10. OMEPRAZOLE [Concomitant]
     Dosage: 20 MG, QD
     Route: 048
     Dates: start: 20061215
  11. PREDNISOLONE [Concomitant]
     Dosage: 10 MG, QD
     Route: 048
     Dates: start: 20020801
  12. TACROLIMUS [Concomitant]
     Dosage: 0.5 MG, BID
     Route: 048
     Dates: start: 20020813

REACTIONS (1)
  - NEPHROTIC SYNDROME [None]
